FAERS Safety Report 5484663-8 (Version None)
Quarter: 2007Q4

REPORT INFORMATION
  Report Type: 
  Country: None (occurrence: None)
  Receive Date: 20071010
  Receipt Date: 20070924
  Transmission Date: 20080405
  Serious: Yes (Hospitalization)
  Sender: FDA-Public Use
  Company Number: DSA_61753_2007

PATIENT
  Age: 6 Year
  Sex: Male

DRUGS (2)
  1. DIASTAT [Suspect]
     Indication: CONVULSION
     Dosage: 20 MG
  2. MULTIPLE UNSPECIFIED CONCOMITANT MEDICATIONS [Concomitant]

REACTIONS (4)
  - CONVULSION [None]
  - DEVICE FAILURE [None]
  - DRUG INEFFECTIVE [None]
  - PHARMACEUTICAL PRODUCT COMPLAINT [None]
